FAERS Safety Report 9204620 (Version 1)
Quarter: 2013Q2

REPORT INFORMATION
  Report Type: Spontaneous
  Country: US (occurrence: US)
  Receive Date: 20130402
  Receipt Date: 20130402
  Transmission Date: 20140414
  Serious: Yes (Other)
  Sender: FDA-Public Use
  Company Number: PHEH2013US007265

PATIENT
  Sex: Female

DRUGS (5)
  1. EXFORGE [Suspect]
     Indication: BLOOD PRESSURE
     Dosage: 1 DF, DAILY
  2. VITAMIN E [Suspect]
     Dosage: UNK UKN, UNK
  3. VITAMIN D [Suspect]
     Dosage: UNK UKN, UNK
  4. CENTRUM SILVER [Suspect]
     Dosage: UNK UKN, UNK
  5. NORVASK [Suspect]

REACTIONS (3)
  - Tendon rupture [Unknown]
  - Sinus disorder [Unknown]
  - Condition aggravated [Unknown]
